FAERS Safety Report 5733140-5 (Version None)
Quarter: 2008Q2

REPORT INFORMATION
  Report Type: 
  Country: None (occurrence: None)
  Receive Date: 20080509
  Receipt Date: 20080424
  Transmission Date: 20081010
  Serious: Yes (Hospitalization)
  Sender: FDA-Public Use
  Company Number: ES-AMGEN-UK277670

PATIENT
  Age: 36 Year
  Sex: Female

DRUGS (11)
  1. NEUPOGEN [Suspect]
     Indication: CHEMOTHERAPY
     Route: 058
     Dates: start: 20040521
  2. CYCLOPHOSPHAMIDE [Concomitant]
     Dates: start: 20040520
  3. DOXORUBICIN HYDROCHLORIDE [Concomitant]
     Dates: start: 20040520
  4. VINCRISTINE [Concomitant]
     Dates: start: 20040520
  5. PREDNISONE TAB [Concomitant]
     Dates: start: 20040520
  6. LAMIVUDINE [Concomitant]
     Route: 065
  7. STAVUDINE [Concomitant]
     Route: 065
  8. KALETRA [Concomitant]
     Route: 065
  9. SEPTRIN FORTE [Concomitant]
     Route: 065
  10. METAMIZOLE [Concomitant]
     Route: 048
  11. ALPRAZOLAM [Concomitant]
     Route: 065

REACTIONS (13)
  - ABDOMINAL PAIN [None]
  - ASTHENIA [None]
  - DIZZINESS [None]
  - DYSPNOEA [None]
  - ERYTHEMA [None]
  - FEELING HOT [None]
  - HYPERHIDROSIS [None]
  - HYPERSENSITIVITY [None]
  - MALAISE [None]
  - NAUSEA [None]
  - PRURITUS [None]
  - RALES [None]
  - RASH [None]
